FAERS Safety Report 10353673 (Version 1)
Quarter: 2014Q3

REPORT INFORMATION
  Report Type: Report from Study
  Country: US (occurrence: US)
  Receive Date: 20140731
  Receipt Date: 20140731
  Transmission Date: 20150326
  Serious: Yes (Death)
  Sender: FDA-Public Use
  Company Number: US-ROCHE-1443077

PATIENT
  Sex: Female

DRUGS (6)
  1. TRASTUZUMAB [Suspect]
     Active Substance: TRASTUZUMAB
     Indication: HER-2 POSITIVE BREAST CANCER
     Dosage: LOADING DOSE OVER 90 MIN (TOTAL 12 DOSES INCLUDING LOADING DOSE). EACH PACLITAXEL PLUS OR MINUS TRAS
     Route: 042
  2. PACLITAXEL. [Suspect]
     Active Substance: PACLITAXEL
     Indication: HER-2 POSITIVE BREAST CANCER
     Dosage: OVER 1 H GIVEN ON DAY 1 WEEKLY FOR UP TO 12 DOSES
     Route: 042
  3. VORINOSTAT [Suspect]
     Active Substance: VORINOSTAT
     Indication: HER-2 POSITIVE BREAST CANCER
     Dosage: AT A DOSE OF 200 OR 300 ON DAYS 1-3 OF EACH WEEKLY PACLITAXEL DOSE.
     Route: 048
  4. DEXAMETHASONE. [Concomitant]
     Active Substance: DEXAMETHASONE
     Dosage: 4 MG PRIOR TO EACH SUBSEQUENT PACLITAXEL DOSE
     Route: 042
  5. TRASTUZUMAB [Suspect]
     Active Substance: TRASTUZUMAB
     Dosage: OVER 30-60 MIN  X 11 DOSES (TOTAL 12 DOSES INCLUDING LOADING DOSE). EACH PACLITAXEL PLUS OR MINUS TR
     Route: 042
  6. DEXAMETHASONE. [Concomitant]
     Active Substance: DEXAMETHASONE
     Indication: PREMEDICATION
     Dosage: PRIOR TO THE FIRST PACLITAXEL DOSE
     Route: 042

REACTIONS (1)
  - Pulmonary embolism [Fatal]
